FAERS Safety Report 10355148 (Version 2)
Quarter: 2014Q3

REPORT INFORMATION
  Report Type: Spontaneous
  Country: US (occurrence: None)
  Receive Date: 20140729
  Receipt Date: 20140807
  Transmission Date: 20150326
  Serious: Yes (Other)
  Sender: FDA-Public Use
  Company Number: USW201407-000165

PATIENT
  Age: 71 Year
  Sex: Female

DRUGS (3)
  1. SINEMET [Concomitant]
     Active Substance: CARBIDOPA\LEVODOPA
  2. APOKYN [Suspect]
     Active Substance: APOMORPHINE HYDROCHLORIDE
     Indication: PARKINSON^S DISEASE
     Route: 058
     Dates: start: 20140610
  3. AMANTIDINE [Concomitant]
     Active Substance: AMANTADINE

REACTIONS (6)
  - Oedema peripheral [None]
  - Mobility decreased [None]
  - Gait disturbance [None]
  - Inappropriate schedule of drug administration [None]
  - Incorrect dose administered [None]
  - Fall [None]

NARRATIVE: CASE EVENT DATE: 20140706
